FAERS Safety Report 24293720 (Version 1)
Quarter: 2024Q3

REPORT INFORMATION
  Report Type: Spontaneous
  Country: US (occurrence: None)
  Receive Date: 20240906
  Receipt Date: 20240906
  Transmission Date: 20241016
  Serious: No
  Sender: DOMPE FARMACEUTICI
  Company Number: US-FARMAPROD-202402-0573

PATIENT
  Age: 69 Year
  Sex: Female

DRUGS (8)
  1. OXERVATE [Suspect]
     Active Substance: CENEGERMIN-BKBJ
     Indication: Neurotrophic keratopathy
     Route: 047
     Dates: start: 20240219
  2. OXERVATE [Suspect]
     Active Substance: CENEGERMIN-BKBJ
  3. PROGESTERONE [Concomitant]
     Active Substance: PROGESTERONE
  4. REFRESH TEARS [Concomitant]
     Active Substance: CARBOXYMETHYLCELLULOSE SODIUM
  5. LEVOTHYROXINE SODIUM [Concomitant]
     Active Substance: LEVOTHYROXINE SODIUM
  6. XANAX [Concomitant]
     Active Substance: ALPRAZOLAM
  7. AMITRIPTYLINE HYDROCHLORIDE [Concomitant]
     Active Substance: AMITRIPTYLINE HYDROCHLORIDE
  8. BIOTIN [Concomitant]
     Active Substance: BIOTIN

REACTIONS (13)
  - Headache [Recovering/Resolving]
  - Device use issue [Unknown]
  - Accidental overdose [Unknown]
  - Product dose omission issue [Unknown]
  - Eye pain [Not Recovered/Not Resolved]
  - Ocular hyperaemia [Unknown]
  - Eye swelling [Not Recovered/Not Resolved]
  - Photophobia [Unknown]
  - Nausea [Not Recovered/Not Resolved]
  - Lacrimation increased [Unknown]
  - Cardiac disorder [Unknown]
  - Oral pain [Recovered/Resolved]
  - Off label use [Unknown]

NARRATIVE: CASE EVENT DATE: 20240219
